FAERS Safety Report 6405283-4 (Version None)
Quarter: 2009Q4

REPORT INFORMATION
  Report Type: 
  Country: None (occurrence: None)
  Receive Date: 20091019
  Receipt Date: 20091007
  Transmission Date: 20100525
  Serious: Yes (Hospitalization)
  Sender: FDA-Public Use
  Company Number: FR-CELGENEUS-056-21880-09090645

PATIENT
  Sex: Male
  Weight: 80 kg

DRUGS (11)
  1. REVLIMID [Suspect]
     Route: 048
     Dates: start: 20090402
  2. DEXAMETHASONE [Concomitant]
     Indication: DRUG USE FOR UNKNOWN INDICATION
     Route: 065
  3. SELOKEN [Concomitant]
     Indication: HYPERTENSION
     Route: 065
  4. AVODART [Concomitant]
     Route: 065
  5. LANZOR [Concomitant]
     Indication: DRUG USE FOR UNKNOWN INDICATION
     Route: 065
  6. BACTRIM DS [Concomitant]
     Route: 065
  7. IMOVANE [Concomitant]
     Indication: INSOMNIA
     Route: 065
  8. PRAVASTATIN [Concomitant]
     Route: 065
  9. LEDERFOLINE [Concomitant]
     Route: 065
  10. LANTUS [Concomitant]
     Route: 065
  11. BICARBONATE SODIUM [Concomitant]
     Indication: ANTACID THERAPY
     Route: 065

REACTIONS (3)
  - HYPERTHERMIA [None]
  - INFLAMMATION [None]
  - PAIN [None]
